FAERS Safety Report 23538493 (Version 1)
Quarter: 2024Q1

REPORT INFORMATION
  Report Type: Spontaneous
  Country: US (occurrence: US)
  Receive Date: 20240219
  Receipt Date: 20240219
  Transmission Date: 20240409
  Serious: No
  Sender: FDA-Public Use
  Company Number: US-PFIZER INC-202400030256

PATIENT
  Age: 76 Year
  Sex: Male
  Weight: 108.86 kg

DRUGS (2)
  1. VYNDAMAX [Suspect]
     Active Substance: TAFAMIDIS
     Indication: Cardiac disorder
     Dosage: 61 MG, 1X/DAY
     Route: 048
     Dates: start: 202211
  2. VYNDAMAX [Suspect]
     Active Substance: TAFAMIDIS
     Indication: Amyloidosis

REACTIONS (5)
  - Asthenia [Unknown]
  - Fatigue [Unknown]
  - Gait disturbance [Unknown]
  - Disease progression [Unknown]
  - Product administration interrupted [Unknown]
